FAERS Safety Report 22608778 (Version 1)
Quarter: 2023Q2

REPORT INFORMATION
  Report Type: Spontaneous
  Country: GB (occurrence: GB)
  Receive Date: 20230616
  Receipt Date: 20230616
  Transmission Date: 20230721
  Serious: Yes (Other)
  Sender: FDA-Public Use
  Company Number: GB-MHRA-MED-202306141529372580-BRSMH

PATIENT
  Age: 39 Year
  Sex: Female

DRUGS (1)
  1. ADALIMUMAB [Suspect]
     Active Substance: ADALIMUMAB
     Indication: Crohn^s disease
     Route: 058

REACTIONS (5)
  - Eye pain [Recovered/Resolved]
  - Eczema [Recovering/Resolving]
  - Dyspnoea [Recovered/Resolved]
  - Eye pruritus [Unknown]
  - Wheezing [Unknown]
